FAERS Safety Report 9563548 (Version 1)
Quarter: 2013Q1

REPORT INFORMATION
  Report Type: Spontaneous
  Country: US (occurrence: None)
  Receive Date: 20121218
  Receipt Date: 20121218
  Transmission Date: 20140127
  Serious: Yes (Other)
  Sender: FDA-Public Use
  Company Number: PHEH2012US002867

PATIENT
  Age: 68 Year
  Sex: Female

DRUGS (1)
  1. ZOMETA (ZOLEDRONATE) UNKNOWN [Suspect]
     Indication: BREAST CANCER
     Dosage: 4 MG, Q3MO
     Dates: start: 20070912

REACTIONS (1)
  - Metastases to lung [None]
